FAERS Safety Report 11968990 (Version 1)
Quarter: 2016Q1

REPORT INFORMATION
  Report Type: Report from Study
  Country: US (occurrence: US)
  Receive Date: 20160128
  Receipt Date: 20160128
  Transmission Date: 20160526
  Serious: No
  Sender: FDA-Public Use
  Company Number: PHEH2015US004572

PATIENT
  Age: 83 Year
  Sex: Female
  Weight: 199.4 kg

DRUGS (2)
  1. EXELON PATCH [Suspect]
     Active Substance: RIVASTIGMINE
     Indication: PARKINSON^S DISEASE
     Dosage: 9.5 MG, QD (10 CM2 PATCH, 18 MG)
     Route: 062
  2. EXELON PATCH [Suspect]
     Active Substance: RIVASTIGMINE
     Indication: DEMENTIA
     Dosage: 4.6 MG, WEAR 2 PATCHES FOR COMPLETE DOSE (5 CM2 PATCH 9 MG)
     Route: 062
     Dates: start: 20150220

REACTIONS (3)
  - Drug prescribing error [Unknown]
  - Drug administration error [Unknown]
  - Drug dispensing error [Recovered/Resolved]

NARRATIVE: CASE EVENT DATE: 20150220
